FAERS Safety Report 7132819-0 (Version None)
Quarter: 2010Q4

REPORT INFORMATION
  Report Type: 
  Country: None (occurrence: None)
  Receive Date: 20101202
  Receipt Date: 20101119
  Transmission Date: 20110411
  Serious: No
  Sender: FDA-Public Use
  Company Number: US-PFIZER INC-2010153546

PATIENT
  Sex: Female
  Weight: 54 kg

DRUGS (5)
  1. AROMASIN [Suspect]
     Indication: BREAST CANCER
     Dosage: 25 MG, 1X/DAY
     Dates: start: 20101001
  2. PRILOSEC [Concomitant]
     Indication: GASTROINTESTINAL DISORDER
  3. HERCEPTIN [Concomitant]
     Dosage: FREQUENCY: EVERY 3 WEEKS,
  4. CALCIUM [Concomitant]
     Indication: OSTEOPOROSIS PROPHYLAXIS
  5. VITAMIN K TAB [Concomitant]
     Indication: OSTEOPOROSIS PROPHYLAXIS

REACTIONS (5)
  - ALOPECIA [None]
  - ARTHRALGIA [None]
  - HEADACHE [None]
  - INSOMNIA [None]
  - MYALGIA [None]
